FAERS Safety Report 22251421 (Version 1)
Quarter: 2023Q2

REPORT INFORMATION
  Report Type: Spontaneous
  Country: US (occurrence: None)
  Receive Date: 20230425
  Receipt Date: 20230425
  Transmission Date: 20230721
  Serious: No
  Sender: FDA-Public Use
  Company Number: None

PATIENT
  Age: 24 Year
  Sex: Female
  Weight: 98.55 kg

DRUGS (4)
  1. TALTZ [Suspect]
     Active Substance: IXEKIZUMAB
     Dosage: OTHER FREQUENCY : EVERY 4 WEEKS;?
     Route: 058
     Dates: start: 20221128
  2. METHOTREXATE [Concomitant]
     Active Substance: METHOTREXATE
  3. VOLTAREN [Concomitant]
     Active Substance: DICLOFENAC SODIUM
  4. SULINDAC [Concomitant]
     Active Substance: SULINDAC

REACTIONS (3)
  - Injection site erythema [None]
  - Injection site warmth [None]
  - Injection site pruritus [None]

NARRATIVE: CASE EVENT DATE: 20230327
